FAERS Safety Report 10908798 (Version 1)
Quarter: 2015Q1

REPORT INFORMATION
  Report Type: Spontaneous
  Country: US (occurrence: None)
  Receive Date: 20150309
  Receipt Date: 20150309
  Transmission Date: 20150721
  Serious: No
  Sender: FDA-Public Use
  Company Number: None

PATIENT
  Age: 36 Year
  Sex: Female

DRUGS (8)
  1. AMPYRA [Suspect]
     Active Substance: DALFAMPRIDINE
     Indication: MULTIPLE SCLEROSIS
     Route: 048
     Dates: start: 201312, end: 201405
  2. BACLOFEN. [Concomitant]
     Active Substance: BACLOFEN
  3. OXYBUTYNIN [Concomitant]
     Active Substance: OXYBUTYNIN
  4. POTASSIUM CITRATE. [Concomitant]
     Active Substance: POTASSIUM CITRATE
  5. AMPYRA [Concomitant]
     Active Substance: DALFAMPRIDINE
  6. RITUXAN [Concomitant]
     Active Substance: RITUXIMAB
  7. TRI-SPRINTEC [Concomitant]
     Active Substance: ETHINYL ESTRADIOL\NORGESTIMATE
  8. LUNESTA [Concomitant]
     Active Substance: ESZOPICLONE

REACTIONS (1)
  - Vertigo [None]

NARRATIVE: CASE EVENT DATE: 20140812
